FAERS Safety Report 16668084 (Version 2)
Quarter: 2019Q3

REPORT INFORMATION
  Report Type: Spontaneous
  Country: US (occurrence: US)
  Receive Date: 20190805
  Receipt Date: 20190812
  Transmission Date: 20191004
  Serious: No
  Sender: FDA-Public Use
  Company Number: US-PFIZER INC-2018431684

PATIENT
  Age: 55 Year
  Sex: Female
  Weight: 63.39 kg

DRUGS (6)
  1. CYMBALTA [Concomitant]
     Active Substance: DULOXETINE HYDROCHLORIDE
  2. LYRICA [Suspect]
     Active Substance: PREGABALIN
     Indication: PAIN
     Dosage: 200 MG, 3X/DAY
     Route: 048
     Dates: start: 20190416
  3. LYRICA [Suspect]
     Active Substance: PREGABALIN
     Indication: ASTHENIA
     Dosage: 200 MG, 2X/DAY
     Route: 048
     Dates: start: 20190416
  4. LYRICA [Suspect]
     Active Substance: PREGABALIN
     Indication: THORACIC OUTLET SYNDROME
     Dosage: 200 MG, 3X/DAY
     Route: 048
     Dates: start: 20190315
  5. METHADONE [Concomitant]
     Active Substance: METHADONE HYDROCHLORIDE
  6. LYRICA [Suspect]
     Active Substance: PREGABALIN
     Dosage: 200 MG, 3X/DAY
     Route: 048
     Dates: start: 20190420

REACTIONS (4)
  - Lethargy [Unknown]
  - Off label use [Unknown]
  - Drug effective for unapproved indication [Unknown]
  - Hypersensitivity [Unknown]

NARRATIVE: CASE EVENT DATE: 20190315
